FAERS Safety Report 7679435-X (Version None)
Quarter: 2011Q3

REPORT INFORMATION
  Report Type: 
  Country: None (occurrence: None)
  Receive Date: 20110805
  Receipt Date: 20110728
  Transmission Date: 20111222
  Serious: Yes (Other)
  Sender: FDA-Public Use
  Company Number: 2011SP035516

PATIENT
  Sex: Female

DRUGS (1)
  1. IMPLANON [Suspect]
     Indication: CONTRACEPTION
     Dates: start: 20110728

REACTIONS (5)
  - FATIGUE [None]
  - CHILLS [None]
  - VOMITING [None]
  - DIZZINESS [None]
  - SYNCOPE [None]
